FAERS Safety Report 16194827 (Version 2)
Quarter: 2019Q2

REPORT INFORMATION
  Report Type: Spontaneous
  Country: US (occurrence: US)
  Receive Date: 20190414
  Receipt Date: 20190426
  Transmission Date: 20190711
  Serious: No
  Sender: FDA-Public Use
  Company Number: US-009507513-1903USA011644

PATIENT
  Age: 57 Year
  Sex: Female

DRUGS (2)
  1. DULERA [Suspect]
     Active Substance: FORMOTEROL FUMARATE DIHYDRATE\MOMETASONE FUROATE
     Indication: ASTHMA
     Dosage: UNK, STARTED FROM 3 TO 5 YEARS AGO
     Route: 055
     Dates: start: 2014
  2. MONTELUKAST SODIUM. [Concomitant]
     Active Substance: MONTELUKAST SODIUM

REACTIONS (6)
  - Cough [Not Recovered/Not Resolved]
  - Product quality issue [Unknown]
  - Product taste abnormal [Unknown]
  - Wheezing [Not Recovered/Not Resolved]
  - Product dose omission [Unknown]
  - Malaise [Not Recovered/Not Resolved]

NARRATIVE: CASE EVENT DATE: 201903
